FAERS Safety Report 5450941-1 (Version None)
Quarter: 2007Q3

REPORT INFORMATION
  Report Type: 
  Country: None (occurrence: None)
  Receive Date: 20070911
  Receipt Date: 20070831
  Transmission Date: 20080115
  Serious: Yes (Other)
  Sender: FDA-Public Use
  Company Number: 2007330215

PATIENT
  Sex: Male

DRUGS (1)
  1. NEOSPORIN (POLYMYXIN SULFATE, BACITRACIN ZINC, NEOMYCIN) [Suspect]
     Indication: WOUND
     Dosage: UNSPECIFIED, TOPICAL
     Route: 061

REACTIONS (2)
  - SWELLING [None]
  - WOUND DEHISCENCE [None]
